FAERS Safety Report 4561323-9 (Version None)
Quarter: 2005Q1

REPORT INFORMATION
  Report Type: 
  Country: None (occurrence: None)
  Receive Date: 20050126
  Receipt Date: 20031211
  Transmission Date: 20050727
  Serious: Yes (Other)
  Sender: FDA-Public Use
  Company Number: PHEH2003US11752

PATIENT
  Age: 18 Year
  Sex: Female

DRUGS (1)
  1. FORADIL [Suspect]
     Indication: INFECTION
     Dates: start: 20031206

REACTIONS (5)
  - CONVULSION [None]
  - FALL [None]
  - HEADACHE [None]
  - LOSS OF CONSCIOUSNESS [None]
  - TREMOR [None]
